FAERS Safety Report 25191085 (Version 1)
Quarter: 2025Q2

REPORT INFORMATION
  Report Type: Spontaneous
  Country: US (occurrence: US)
  Receive Date: 20250411
  Receipt Date: 20250411
  Transmission Date: 20250716
  Serious: No
  Sender: LUNDBECK
  Company Number: US-LUNDBECK-DKLU4013142

PATIENT
  Age: 62 Year
  Sex: Female
  Weight: 55.338 kg

DRUGS (9)
  1. VYEPTI [Suspect]
     Active Substance: EPTINEZUMAB-JJMR
     Indication: Migraine
     Dosage: 300 MILLIGRAM
     Route: 041
     Dates: start: 20240627
  2. ALENDRONATE [Concomitant]
     Active Substance: ALENDRONATE SODIUM
     Indication: Product used for unknown indication
     Route: 048
  3. QULIPTA [Concomitant]
     Active Substance: ATOGEPANT
     Indication: Product used for unknown indication
     Route: 048
  4. CYANOCOBALAMIN [Concomitant]
     Active Substance: CYANOCOBALAMIN
     Indication: Product used for unknown indication
     Route: 030
  5. ELETRIPTAN [Concomitant]
     Active Substance: ELETRIPTAN
     Indication: Product used for unknown indication
     Route: 048
  6. ESTRING [Concomitant]
     Active Substance: ESTRADIOL
     Indication: Product used for unknown indication
     Route: 067
  7. PHENAZOPYRIDINE [Concomitant]
     Active Substance: PHENAZOPYRIDINE
     Indication: Product used for unknown indication
     Route: 048
  8. PROPRANOLOL [Concomitant]
     Active Substance: PROPRANOLOL HYDROCHLORIDE
     Indication: Migraine prophylaxis
     Route: 048
  9. RIZATRIPTAN [Concomitant]
     Active Substance: RIZATRIPTAN
     Indication: Migraine
     Route: 060

REACTIONS (1)
  - Drug ineffective [Not Recovered/Not Resolved]
